FAERS Safety Report 4473923-5 (Version None)
Quarter: 2004Q4

REPORT INFORMATION
  Report Type: 
  Country: None (occurrence: None)
  Receive Date: 20041013
  Receipt Date: 20041013
  Transmission Date: 20050328
  Serious: Yes (Other)
  Sender: FDA-Public Use
  Company Number: None

PATIENT
  Age: 58 Year
  Sex: Female
  Weight: 84.8226 kg

DRUGS (2)
  1. OXYCODONE HCL [Suspect]
     Indication: LUMBAR SPINAL STENOSIS
     Dosage: ONE- TWO PO Q 8 H PRN
     Route: 048
     Dates: start: 20040709, end: 20040811
  2. OXYCODONE HCL [Suspect]
     Indication: SPONDYLOSIS
     Dosage: ONE- TWO PO Q 8 H PRN
     Route: 048
     Dates: start: 20040709, end: 20040811

REACTIONS (2)
  - DRUG EFFECT DECREASED [None]
  - PHARMACEUTICAL PRODUCT COMPLAINT [None]
